FAERS Safety Report 7578505-4 (Version None)
Quarter: 2011Q2

REPORT INFORMATION
  Report Type: 
  Country: None (occurrence: None)
  Receive Date: 20110628
  Receipt Date: 20110621
  Transmission Date: 20111010
  Serious: Yes (Other)
  Sender: FDA-Public Use
  Company Number: US-ABBOTT-11P-163-0715985-00

PATIENT
  Sex: Female

DRUGS (9)
  1. PERCOCET [Concomitant]
     Indication: PRODUCT USED FOR UNKNOWN INDICATION
  2. PREDNISONE [Concomitant]
     Indication: PRODUCT USED FOR UNKNOWN INDICATION
  3. HUMIRA [Suspect]
     Indication: COLITIS ULCERATIVE
     Dates: start: 20081001, end: 20090401
  4. BUDESONIDE [Concomitant]
     Indication: PRODUCT USED FOR UNKNOWN INDICATION
     Route: 054
  5. PAMELOR [Concomitant]
     Indication: PRODUCT USED FOR UNKNOWN INDICATION
  6. PURINETHOL [Concomitant]
     Indication: PRODUCT USED FOR UNKNOWN INDICATION
  7. LEVSIN [Concomitant]
     Indication: PRODUCT USED FOR UNKNOWN INDICATION
  8. AMBIEN [Concomitant]
     Indication: PRODUCT USED FOR UNKNOWN INDICATION
  9. VSC #3 [Concomitant]
     Indication: PRODUCT USED FOR UNKNOWN INDICATION

REACTIONS (3)
  - COLITIS ULCERATIVE [None]
  - T-CELL LYMPHOMA [None]
  - RENAL FAILURE ACUTE [None]
